FAERS Safety Report 23379257 (Version 2)
Quarter: 2024Q1

REPORT INFORMATION
  Report Type: Spontaneous
  Country: US (occurrence: US)
  Receive Date: 20240108
  Receipt Date: 20240110
  Transmission Date: 20240410
  Serious: Yes (Death, Other)
  Sender: FDA-Public Use
  Company Number: US-PFIZER INC-202300457974

PATIENT
  Age: 74 Year
  Sex: Male

DRUGS (2)
  1. AMIODARONE HYDROCHLORIDE [Suspect]
     Active Substance: AMIODARONE HYDROCHLORIDE
     Indication: Coronary artery disease
     Dosage: UNK, FOR MONTHS
  2. AMIODARONE HYDROCHLORIDE [Suspect]
     Active Substance: AMIODARONE HYDROCHLORIDE
     Indication: Ischaemic cardiomyopathy

REACTIONS (4)
  - Hyperthyroidism [Fatal]
  - Thyrotoxic crisis [Fatal]
  - Cardiogenic shock [Fatal]
  - Cardiac arrest [Unknown]
